FAERS Safety Report 24569325 (Version 1)
Quarter: 2024Q4

REPORT INFORMATION
  Report Type: Spontaneous
  Country: ES (occurrence: ES)
  Receive Date: 20241031
  Receipt Date: 20241031
  Transmission Date: 20250115
  Serious: Yes (Other)
  Sender: PFIZER
  Company Number: ES-ROCHE-3062195

PATIENT
  Age: 56 Year
  Sex: Male
  Weight: 58.8 kg

DRUGS (30)
  1. CARBOPLATIN [Suspect]
     Active Substance: CARBOPLATIN
     Indication: Non-small cell lung cancer metastatic
     Dosage: 587 MG, EVERY 3 WEEKS
     Route: 042
     Dates: start: 20210804
  2. CARBOPLATIN [Suspect]
     Active Substance: CARBOPLATIN
     Dosage: 337 MG
     Route: 042
  3. PEMETREXED [Suspect]
     Active Substance: PEMETREXED
     Dosage: 911 MG, EVERY 3 WEEKS
     Route: 042
     Dates: start: 20210804
  4. PEMETREXED [Suspect]
     Active Substance: PEMETREXED
     Dosage: 683.25 MG
     Route: 042
  5. TIRAGOLUMAB [Suspect]
     Active Substance: TIRAGOLUMAB
     Indication: Non-small cell lung cancer metastatic
     Dosage: ON 04MAR2022 AND ON 19/AUG/2022, RECEIVED MOST RECENT DOSE OF STUDY DRUG PRIOR TO AE
     Route: 042
     Dates: start: 20210804
  6. TIRAGOLUMAB [Suspect]
     Active Substance: TIRAGOLUMAB
     Dosage: UNK
     Route: 042
  7. ATEZOLIZUMAB [Suspect]
     Active Substance: ATEZOLIZUMAB
     Indication: Non-small cell lung cancer metastatic
     Dosage: UNK
     Route: 042
     Dates: start: 20210804
  8. PEMBROLIZUMAB [Suspect]
     Active Substance: PEMBROLIZUMAB
     Dosage: UNK
     Route: 042
  9. CIANOCOBALAMINA [Concomitant]
     Indication: Prophylactic chemotherapy
     Dosage: UNK
     Route: 030
     Dates: start: 20210715
  10. THIAMINE HYDROCHLORIDE [Concomitant]
     Active Substance: THIAMINE HYDROCHLORIDE
     Indication: Prophylactic chemotherapy
     Dosage: 300 MG, 1X/DAY
     Route: 048
     Dates: start: 20210715
  11. PYRIDOXINE HYDROCHLORIDE [Concomitant]
     Active Substance: PYRIDOXINE HYDROCHLORIDE
     Indication: Prophylactic chemotherapy
     Dosage: 300 MG, 1X/DAY
     Route: 048
     Dates: start: 20210715
  12. ZOLPIDEM TARTRATE [Concomitant]
     Active Substance: ZOLPIDEM TARTRATE
     Indication: Anxiety
     Dosage: 10 MG, 1X/DAY
     Route: 048
     Dates: start: 20211110
  13. TRAZODONE HYDROCHLORIDE [Concomitant]
     Active Substance: TRAZODONE HYDROCHLORIDE
     Indication: Insomnia
     Dosage: 100 MG, 1X/DAY
     Route: 048
     Dates: start: 20210902
  14. BISOPROLOL [Concomitant]
     Active Substance: BISOPROLOL\BISOPROLOL FUMARATE
     Indication: Tachycardia
     Dosage: 5 MG, 1X/DAY
     Route: 048
     Dates: start: 20230123
  15. HYDROCORTISONE [Concomitant]
     Active Substance: HYDROCORTISONE
     Indication: Inflammation
     Dosage: 80 MG, 1X/DAY
     Route: 048
     Dates: start: 20230605, end: 20230611
  16. DEXAMETHASONE [Concomitant]
     Active Substance: DEXAMETHASONE
     Indication: Prophylactic chemotherapy
     Dosage: 8 MG, EVERY 3 WEEKS
     Route: 048
     Dates: start: 20211111, end: 20220325
  17. PREDNISONE [Concomitant]
     Active Substance: PREDNISONE
     Indication: Colitis
     Dosage: 30 MG, 1X/DAY
     Route: 048
     Dates: start: 20230911, end: 20230917
  18. PREDNISONE [Concomitant]
     Active Substance: PREDNISONE
     Dosage: 20 MG, 1X/DAY
     Route: 048
     Dates: start: 20230918, end: 20230925
  19. PREDNISONE [Concomitant]
     Active Substance: PREDNISONE
     Dosage: 10 MG, 1X/DAY
     Route: 048
     Dates: start: 20230926, end: 20231002
  20. GRANISETRON [Concomitant]
     Active Substance: GRANISETRON
     Indication: Prophylactic chemotherapy
     Dosage: 1 G, 1X/DAY
     Route: 048
     Dates: start: 20211111
  21. HYALURONIC ACID [Concomitant]
     Active Substance: HYALURONIC ACID
     Indication: Ocular toxicity
     Dosage: OCULAR WETTING SOLUTION OF HYALURONIC ACID OF 0.1% STERILE
     Route: 047
     Dates: start: 20220304
  22. ENOXAPARIN SODIUM [Concomitant]
     Active Substance: ENOXAPARIN SODIUM
     Dosage: 80 MG, 1X/DAY
     Route: 048
     Dates: start: 20210712
  23. METHYLPREDNISOLONE [Concomitant]
     Active Substance: METHYLPREDNISOLONE
     Indication: Blood creatinine increased
     Dosage: 60 MG, 1X/DAY
     Route: 048
     Dates: start: 20220715, end: 20220717
  24. METHYLPREDNISOLONE [Concomitant]
     Active Substance: METHYLPREDNISOLONE
     Dosage: 40 MG, 1X/DAY
     Route: 048
     Dates: start: 20220718, end: 20220721
  25. METHYLPREDNISOLONE [Concomitant]
     Active Substance: METHYLPREDNISOLONE
     Dosage: 20 CAPSULE
     Route: 048
     Dates: start: 20220722, end: 20220724
  26. ASPIRIN [Concomitant]
     Active Substance: ASPIRIN
     Dosage: 100 MG, 1X/DAY
     Route: 048
     Dates: start: 20210712
  27. LORMETAZEPAM [Concomitant]
     Active Substance: LORMETAZEPAM
     Dosage: 2 MG, 1X/DAY
     Route: 048
     Dates: start: 20221022
  28. AUGMENTIN [Concomitant]
     Active Substance: AMOXICILLIN\CLAVULANATE POTASSIUM
     Indication: Anal fistula infection
     Dosage: FREQ:.33 D;
     Route: 048
     Dates: start: 20230605, end: 20230612
  29. MAGNESIUM [Concomitant]
     Active Substance: MAGNESIUM
     Indication: Prophylaxis
     Dosage: UNK
     Route: 042
     Dates: start: 20240207
  30. OMEPRAZOLE [Concomitant]
     Active Substance: OMEPRAZOLE
     Dosage: 20 MG, 1X/DAY
     Route: 048
     Dates: start: 20210629

REACTIONS (2)
  - Hyperthyroidism [Recovered/Resolved]
  - Hypophysitis [Not Recovered/Not Resolved]

NARRATIVE: CASE EVENT DATE: 20220325
